FAERS Safety Report 21872146 (Version 1)
Quarter: 2023Q1

REPORT INFORMATION
  Report Type: Report from Study
  Country: US (occurrence: US)
  Receive Date: 20230117
  Receipt Date: 20230117
  Transmission Date: 20230417
  Serious: Yes (Other)
  Sender: FDA-Public Use
  Company Number: US-GILEAD-2023-0612820

PATIENT
  Sex: Female

DRUGS (1)
  1. AZTREONAM LYSINE [Suspect]
     Active Substance: AZTREONAM LYSINE
     Indication: Illness
     Dosage: 1 ML VIAL VIA ALTERA NEBULIZER THREE TIMES A DAY FOR 28 DAYS FOLLOWED BY 28 DAYS OFF
     Route: 055

REACTIONS (2)
  - Pathogen resistance [Unknown]
  - Diarrhoea [Unknown]
